FAERS Safety Report 20826803 (Version 2)
Quarter: 2022Q2

REPORT INFORMATION
  Report Type: Spontaneous
  Country: US (occurrence: US)
  Receive Date: 20220513
  Receipt Date: 20220519
  Transmission Date: 20220721
  Serious: No
  Sender: FDA-Public Use
  Company Number: US-BRISTOL-MYERS SQUIBB COMPANY-2022-035397

PATIENT
  Age: 80 Year
  Sex: Female

DRUGS (2)
  1. REVLIMID [Suspect]
     Active Substance: LENALIDOMIDE
     Indication: Plasma cell myeloma
     Dosage: TAKE 1 CAPSULE?(15MG TOTAL) BY?MOUTH DAILY.?TAKE 14 DAYS ON,?7 DAYS OFF,?REPEAT EVERY 21?DAYS
     Route: 048
     Dates: start: 20220307
  2. REVLIMID [Suspect]
     Active Substance: LENALIDOMIDE
     Route: 065

REACTIONS (2)
  - Diarrhoea [Unknown]
  - Intentional product use issue [Unknown]
